FAERS Safety Report 10007497 (Version 1)
Quarter: 2014Q1

REPORT INFORMATION
  Report Type: Spontaneous
  Country: US (occurrence: None)
  Receive Date: 20140312
  Receipt Date: 20140312
  Transmission Date: 20141002
  Serious: Yes (Hospitalization)
  Sender: FDA-Public Use
  Company Number: None

PATIENT
  Age: 60 Year
  Sex: Female

DRUGS (2)
  1. TEMOZOLOMIDE 140MG TEVA [Suspect]
     Indication: BRAIN NEOPLASM MALIGNANT
     Dosage: 1 CAP QD ORAL
     Route: 048
     Dates: start: 20140127, end: 20140308
  2. TEMOZOLOMIDE [Suspect]
     Indication: BRAIN NEOPLASM MALIGNANT
     Dosage: 2 CAPSULE
     Route: 048
     Dates: start: 20140127, end: 20140307

REACTIONS (1)
  - Dehydration [None]
